FAERS Safety Report 6214976-3 (Version None)
Quarter: 2009Q2

REPORT INFORMATION
  Report Type: 
  Country: None (occurrence: None)
  Receive Date: 20090604
  Receipt Date: 20090112
  Transmission Date: 20091009
  Serious: No
  Sender: FDA-Public Use
  Company Number: US-ASTRAZENECA-2005UW17918

PATIENT
  Age: 68 Year
  Sex: Female
  Weight: 76.7 kg

DRUGS (3)
  1. PRILOSEC [Suspect]
     Indication: REFLUX OESOPHAGITIS
     Route: 048
     Dates: start: 20041001
  2. PROBIOTICS [Concomitant]
  3. LISINOPRIL [Concomitant]

REACTIONS (2)
  - DIARRHOEA [None]
  - DRY THROAT [None]
